FAERS Safety Report 13473762 (Version 2)
Quarter: 2017Q2

REPORT INFORMATION
  Report Type: Spontaneous
  Country: US (occurrence: US)
  Receive Date: 20170424
  Receipt Date: 20170515
  Transmission Date: 20170830
  Serious: Yes (Life-Threatening, Other)
  Sender: FDA-Public Use
  Company Number: US-MYLANLABS-2017M1023933

PATIENT

DRUGS (1)
  1. EPIPEN JR [Suspect]
     Active Substance: EPINEPHRINE
     Indication: ANAPHYLACTIC REACTION
     Dosage: UNK UNK, ONCE
     Route: 030
     Dates: start: 20170413, end: 20170413

REACTIONS (2)
  - Device failure [Recovered/Resolved]
  - Injection site laceration [Recovered/Resolved]

NARRATIVE: CASE EVENT DATE: 20170413
